FAERS Safety Report 6434263-8 (Version None)
Quarter: 2009Q4

REPORT INFORMATION
  Report Type: 
  Country: None (occurrence: None)
  Receive Date: 20091110
  Receipt Date: 20090422
  Transmission Date: 20100525
  Serious: No
  Sender: FDA-Public Use
  Company Number: US-ASTRAZENECA-2009SE08909

PATIENT
  Age: 30 Year
  Sex: Female

DRUGS (3)
  1. PRILOSEC OTC [Suspect]
     Dosage: 1 TABLET, 1 /DAY
     Route: 048
     Dates: start: 20090414, end: 20090420
  2. FLORINEF [Suspect]
  3. POTASSIUM CHLORIDE [Suspect]

REACTIONS (5)
  - AGITATION [None]
  - ASTHENIA [None]
  - TACHYCARDIA [None]
  - THIRST [None]
  - TREMOR [None]
